FAERS Safety Report 8433069-8 (Version None)
Quarter: 2012Q2

REPORT INFORMATION
  Report Type: 
  Country: None (occurrence: None)
  Receive Date: 20120323
  Receipt Date: 20110531
  Transmission Date: 20120825
  Serious: Yes (Disabling)
  Sender: FDA-Public Use
  Company Number: 163-21880-11060364

PATIENT
  Age: 67 Year
  Sex: Male

DRUGS (8)
  1. ASPIRIN [Concomitant]
  2. ACYCLOVIR [Concomitant]
  3. VELCADE [Concomitant]
  4. FISH OIL (FISH OIL) [Concomitant]
  5. FENOFIBRATE [Concomitant]
  6. SIMVASTATIN [Concomitant]
  7. THORAZINE [Concomitant]
  8. REVLIMID [Suspect]
     Indication: MULTIPLE MYELOMA
     Dosage: 25 MG, X 21 DAYS, PO
     Route: 048
     Dates: start: 20100408

REACTIONS (1)
  - CELLULITIS [None]
